FAERS Safety Report 9220183 (Version 1)
Quarter: 2013Q1

REPORT INFORMATION
  Report Type: Spontaneous
  Country: US (occurrence: US)
  Receive Date: 20120830
  Receipt Date: 20120830
  Transmission Date: 20140127
  Serious: Yes (Other)
  Sender: FDA-Public Use
  Company Number: PHEH2009US019102

PATIENT
  Age: 61 Year
  Sex: Male

DRUGS (1)
  1. SANDOSTATIN LAR (OCTREOTIDE W/POLY (D L-LACTIDE-CO-GLYCOLIDE)) [Suspect]
     Indication: ACROMEGALY
     Route: 030
     Dates: start: 20080909, end: 20090224

REACTIONS (2)
  - Hypertension [None]
  - Blood pressure systolic increased [None]
